FAERS Safety Report 11211709 (Version 2)
Quarter: 2015Q3

REPORT INFORMATION
  Report Type: Report from Study
  Country: US (occurrence: US)
  Receive Date: 20150623
  Receipt Date: 20150701
  Transmission Date: 20151125
  Serious: Yes (Hospitalization, Other)
  Sender: FDA-Public Use
  Company Number: US-BIOGENIDEC-2015BI083019

PATIENT
  Age: 53 Year
  Sex: Female

DRUGS (1)
  1. TYSABRI [Suspect]
     Active Substance: NATALIZUMAB
     Indication: MULTIPLE SCLEROSIS
     Route: 042
     Dates: start: 20140306

REACTIONS (5)
  - Multiple sclerosis relapse [Recovered/Resolved with Sequelae]
  - Post procedural swelling [Recovered/Resolved with Sequelae]
  - Knee operation [Recovered/Resolved]
  - Procedural pain [Recovered/Resolved with Sequelae]
  - Post procedural complication [Recovered/Resolved with Sequelae]

NARRATIVE: CASE EVENT DATE: 201502
